FAERS Safety Report 5324043-9 (Version None)
Quarter: 2007Q2

REPORT INFORMATION
  Report Type: 
  Country: None (occurrence: None)
  Receive Date: 20070514
  Receipt Date: 20070504
  Transmission Date: 20071010
  Serious: Yes (Hospitalization)
  Sender: FDA-Public Use
  Company Number: US-AMGEN-US189937

PATIENT
  Sex: Female

DRUGS (5)
  1. PANITUMUMAB [Suspect]
     Indication: COLORECTAL CANCER
     Route: 042
     Dates: start: 20060619, end: 20060724
  2. AVASTIN [Suspect]
     Route: 042
  3. OXALIPLATIN [Suspect]
     Route: 042
  4. FLUOROURACIL [Suspect]
     Route: 042
  5. LEUCOVORIN CALCIUM [Suspect]
     Route: 042

REACTIONS (3)
  - DEHYDRATION [None]
  - HYPERNATRAEMIA [None]
  - JUGULAR VEIN THROMBOSIS [None]
